FAERS Safety Report 10736603 (Version 4)
Quarter: 2015Q2

REPORT INFORMATION
  Report Type: Spontaneous
  Country: IT (occurrence: IT)
  Receive Date: 20150126
  Receipt Date: 20150407
  Transmission Date: 20150821
  Serious: Yes (Hospitalization)
  Sender: FDA-Public Use
  Company Number: IT-TEVA-536052ISR

PATIENT
  Age: 24 Year
  Sex: Female
  Weight: 50 kg

DRUGS (5)
  1. DAPSONE. [Concomitant]
     Active Substance: DAPSONE
     Indication: ANTIFUNGAL PROPHYLAXIS
     Route: 048
     Dates: start: 20140904, end: 20140923
  2. LEVOFLOXACIN. [Suspect]
     Active Substance: LEVOFLOXACIN
     Indication: PULMONARY TUBERCULOSIS
     Dosage: 500 MILLIGRAM DAILY;
     Route: 048
     Dates: start: 20140904
  3. ETHAMBUTOL [Suspect]
     Active Substance: ETHAMBUTOL HYDROCHLORIDE
     Indication: PULMONARY TUBERCULOSIS
     Dosage: 1200 MILLIGRAM DAILY;
     Route: 048
     Dates: start: 20140904, end: 20140923
  4. RIFAMPICIN [Suspect]
     Active Substance: RIFAMPIN
     Indication: PULMONARY TUBERCULOSIS
     Dosage: 150 MILLIGRAM DAILY;
     Route: 048
     Dates: start: 20140904, end: 20140923
  5. STREPTOMYCIN [Concomitant]
     Active Substance: STREPTOMYCIN\STREPTOMYCIN SULFATE
     Indication: PULMONARY TUBERCULOSIS
     Route: 030
     Dates: start: 20140904, end: 20140923

REACTIONS (3)
  - Skin exfoliation [Recovered/Resolved]
  - Flushing [Recovered/Resolved]
  - Transaminases increased [Recovered/Resolved]

NARRATIVE: CASE EVENT DATE: 20140923
